FAERS Safety Report 17349696 (Version 1)
Quarter: 2020Q1

REPORT INFORMATION
  Report Type: Spontaneous
  Country: CA (occurrence: CA)
  Receive Date: 20200130
  Receipt Date: 20200130
  Transmission Date: 20200409
  Serious: Yes (Hospitalization)
  Sender: FDA-Public Use
  Company Number: CA-PFIZER INC-2020036636

PATIENT
  Age: 79 Year
  Sex: Female
  Weight: 81 kg

DRUGS (4)
  1. NIFEDIPINE. [Suspect]
     Active Substance: NIFEDIPINE
     Dosage: 20 MG, 2X/DAY
     Route: 048
  2. TRENTAL [Suspect]
     Active Substance: PENTOXIFYLLINE
     Dosage: 400 MG, 3X/DAY
     Route: 048
  3. HYDROCHLOROTHIAZIDE/TRIAMTERENE [Suspect]
     Active Substance: HYDROCHLOROTHIAZIDE\TRIAMTERENE
     Dosage: 1 DF, UNK
     Route: 048
  4. IBUPROFEN. [Suspect]
     Active Substance: IBUPROFEN
     Dosage: 1 DF, 3X/DAY
     Route: 048

REACTIONS (4)
  - Gastric ulcer [Recovered/Resolved]
  - Anaemia [Recovered/Resolved]
  - Melaena [Recovered/Resolved]
  - Gastrointestinal haemorrhage [Recovered/Resolved]
